FAERS Safety Report 18596174 (Version 8)
Quarter: 2023Q2

REPORT INFORMATION
  Report Type: Report from Study
  Country: IT (occurrence: IT)
  Receive Date: 20201209
  Receipt Date: 20230428
  Transmission Date: 20230721
  Serious: Yes (Hospitalization, Other)
  Sender: FDA-Public Use
  Company Number: IT-UCBSA-2020045784

PATIENT
  Age: 59 Year
  Sex: Female
  Weight: 70 kg

DRUGS (6)
  1. LACOSAMIDE [Suspect]
     Active Substance: LACOSAMIDE
     Indication: Epilepsy
     Dosage: 100MG 1 AND HALF TABLET IN THE MORNING
     Dates: start: 202009
  2. LACOSAMIDE [Suspect]
     Active Substance: LACOSAMIDE
     Dosage: 150 MG IN THE MORNING AND ONE OF 100 MG IN THE EVENING
  3. LACOSAMIDE [Suspect]
     Active Substance: LACOSAMIDE
     Dosage: 150 MILLIGRAM, 2X/DAY (BID)
     Dates: start: 202202
  4. LACOSAMIDE [Suspect]
     Active Substance: LACOSAMIDE
     Dosage: 150MG AM AND 100MG PM
     Dates: start: 202204
  5. KEPPRA [Suspect]
     Active Substance: LEVETIRACETAM
     Indication: Epilepsy
     Dosage: 500 MILLIGRAM
  6. CIPRALEX [Concomitant]
     Active Substance: ESCITALOPRAM OXALATE
     Indication: Product used for unknown indication
     Dosage: UNK

REACTIONS (12)
  - Seizure [Not Recovered/Not Resolved]
  - Loss of consciousness [Unknown]
  - Syncope [Unknown]
  - Head injury [Unknown]
  - Gingival abscess [Unknown]
  - Pruritus [Unknown]
  - Therapeutic product effect incomplete [Unknown]
  - Product use issue [Unknown]
  - Therapy interrupted [Unknown]
  - Somnolence [Unknown]
  - Bone pain [Unknown]
  - Memory impairment [Unknown]

NARRATIVE: CASE EVENT DATE: 20201101
